FAERS Safety Report 7919568-3 (Version None)
Quarter: 2011Q4

REPORT INFORMATION
  Report Type: 
  Country: None (occurrence: None)
  Receive Date: 20111115
  Receipt Date: 20111102
  Transmission Date: 20120403
  Serious: Yes (Life-Threatening, Hospitalization)
  Sender: FDA-Public Use
  Company Number: VISP-NO-1111S-0468

PATIENT
  Age: 60 Year
  Sex: Female

DRUGS (2)
  1. CORTIVASOL (ALTM) (CORTIVASOL) [Suspect]
     Dosage: EPIDURAL
     Route: 008
     Dates: start: 20110311, end: 20110311
  2. VISIPAQUE [Suspect]
     Indication: PRODUCT USED FOR UNKNOWN INDICATION
     Dosage: 10 ML, SINGLE, DOSE, EPIDURAL
     Route: 008
     Dates: start: 20110311, end: 20110311

REACTIONS (21)
  - HYPERTENSION [None]
  - PYREXIA [None]
  - ISCHAEMIC STROKE [None]
  - CAROTID ARTERY DISSECTION [None]
  - CHEST PAIN [None]
  - RENAL ISCHAEMIA [None]
  - SERUM FERRITIN INCREASED [None]
  - TRANSIENT GLOBAL AMNESIA [None]
  - VASCULAR PSEUDOANEURYSM [None]
  - ANTINUCLEAR ANTIBODY POSITIVE [None]
  - EHLERS-DANLOS SYNDROME [None]
  - TROPONIN INCREASED [None]
  - RENAL ARTERY DISSECTION [None]
  - VERTEBRAL ARTERY STENOSIS [None]
  - HEADACHE [None]
  - ARTERY DISSECTION [None]
  - RENAL ARTERY FIBROMUSCULAR DYSPLASIA [None]
  - ANGIODYSPLASIA [None]
  - CORONARY ARTERY OCCLUSION [None]
  - INFLAMMATION [None]
  - ARTERIAL DISORDER [None]
